FAERS Safety Report 24072428 (Version 6)
Quarter: 2024Q4

REPORT INFORMATION
  Report Type: Report from Study
  Country: CO (occurrence: CO)
  Receive Date: 20240710
  Receipt Date: 20241228
  Transmission Date: 20250115
  Serious: Yes (Hospitalization, Other)
  Sender: AMGEN
  Company Number: CO-AMGEN-COLSL2024133092

PATIENT
  Age: 60 Year
  Sex: Female

DRUGS (2)
  1. VECTIBIX [Suspect]
     Active Substance: PANITUMUMAB
     Indication: Colorectal cancer metastatic
     Dosage: 250 MILLIGRAM, Q2WK BIWEEKLY
     Route: 042
     Dates: start: 20240621
  2. VECTIBIX [Suspect]
     Active Substance: PANITUMUMAB
     Dosage: 260 MILLIGRAM, Q2WK BIWEEKLY
     Route: 040
     Dates: start: 2024

REACTIONS (9)
  - Skin burning sensation [Not Recovered/Not Resolved]
  - Pain of skin [Not Recovered/Not Resolved]
  - Oedema peripheral [Not Recovered/Not Resolved]
  - Rash [Not Recovered/Not Resolved]
  - Drug hypersensitivity [Not Recovered/Not Resolved]
  - Conjunctival hyperaemia [Not Recovered/Not Resolved]
  - Skin injury [Not Recovered/Not Resolved]
  - Dry eye [Not Recovered/Not Resolved]
  - Drug eruption [Not Recovered/Not Resolved]

NARRATIVE: CASE EVENT DATE: 20240101
